FAERS Safety Report 10185107 (Version 1)
Quarter: 2014Q2

REPORT INFORMATION
  Report Type: Spontaneous
  Country: JP (occurrence: JP)
  Receive Date: 20140521
  Receipt Date: 20140521
  Transmission Date: 20141212
  Serious: Yes (Death)
  Sender: FDA-Public Use
  Company Number: JP-PFIZER INC-2014136104

PATIENT
  Age: 48 Year
  Sex: Male

DRUGS (6)
  1. SUNITINIB MALATE [Suspect]
     Indication: CLEAR CELL RENAL CELL CARCINOMA
     Dosage: 50 MG, DAILY
  2. SUNITINIB MALATE [Suspect]
     Dosage: 37.5 MG
  3. PAZOPANIB [Suspect]
     Indication: CLEAR CELL RENAL CELL CARCINOMA
     Dosage: 400 MG, DAILY
  4. LAPATINIB [Suspect]
     Indication: CLEAR CELL RENAL CELL CARCINOMA
     Dosage: 1000 MG, DAILY
  5. AMLODIPINE [Concomitant]
     Indication: HYPERTENSION
     Dosage: 2.5 MG, DAILY
  6. AMLODIPINE [Concomitant]
     Dosage: 5 MG, DAILY (INCREASED TO 5 MG ON DAY 21)

REACTIONS (1)
  - Aortic dissection [Fatal]
